FAERS Safety Report 9531070 (Version 1)
Quarter: 2013Q3

REPORT INFORMATION
  Report Type: Spontaneous
  Country: IR (occurrence: IR)
  Receive Date: 20130918
  Receipt Date: 20130918
  Transmission Date: 20140515
  Serious: Yes (Other)
  Sender: FDA-Public Use
  Company Number: IR-ACCORD-019452

PATIENT
  Age: 27 Year
  Sex: Male

DRUGS (4)
  1. IRINOTECAN HYDROCHLORIDE [Suspect]
     Indication: RECTOSIGMOID CANCER METASTATIC
  2. OXALIPLATIN [Suspect]
     Indication: RECTOSIGMOID CANCER METASTATIC
  3. FLUOROURACIL [Suspect]
     Indication: RECTOSIGMOID CANCER
  4. FOLINIC ACID [Concomitant]
     Indication: RECTOSIGMOID CANCER

REACTIONS (1)
  - Chronic myeloid leukaemia [Not Recovered/Not Resolved]
